FAERS Safety Report 19839505 (Version 2)
Quarter: 2024Q2

REPORT INFORMATION
  Report Type: Spontaneous
  Country: CZ (occurrence: CZ)
  Receive Date: 20210916
  Receipt Date: 20240409
  Transmission Date: 20240716
  Serious: Yes (Other)
  Sender: FDA-Public Use
  Company Number: CZ-TEVA-2021-CZ-1902169

PATIENT
  Age: 7 Decade
  Sex: Female

DRUGS (4)
  1. OXALIPLATIN [Suspect]
     Active Substance: OXALIPLATIN
     Indication: Oesophageal cancer metastatic
     Dosage: PART OF FLOT REGIMEN
     Route: 065
     Dates: start: 201803
  2. FLUOROURACIL [Suspect]
     Active Substance: FLUOROURACIL
     Indication: Oesophageal cancer metastatic
     Dosage: UNK
     Route: 065
     Dates: start: 201803
  3. LEUCOVORIN [Suspect]
     Active Substance: LEUCOVORIN\LEUCOVORIN CALCIUM
     Indication: Oesophageal cancer metastatic
     Dosage: PART OF FLOT REGIMEN
     Route: 065
     Dates: start: 201803
  4. DOCETAXEL [Suspect]
     Active Substance: DOCETAXEL\DOCETAXEL ANHYDROUS
     Indication: Oesophageal cancer metastatic
     Dosage: PART OF FLOT REGIMEN
     Route: 065
     Dates: start: 201803

REACTIONS (6)
  - Haematotoxicity [Recovered/Resolved]
  - Fracture [Recovered/Resolved]
  - Neuropathy peripheral [Recovered/Resolved]
  - Fall [Recovered/Resolved]
  - Neutropenia [Recovered/Resolved]
  - Anaemia [Recovered/Resolved]

NARRATIVE: CASE EVENT DATE: 20180301
